FAERS Safety Report 10461758 (Version 3)
Quarter: 2015Q1

REPORT INFORMATION
  Report Type: Spontaneous
  Country: IL (occurrence: IL)
  Receive Date: 20140918
  Receipt Date: 20150119
  Transmission Date: 20150720
  Serious: Yes (Other)
  Sender: FDA-Public Use
  Company Number: PHBS1992IL02333

PATIENT
  Age: 38 Year
  Sex: Male

DRUGS (5)
  1. IMIPRAMINE [Suspect]
     Active Substance: IMIPRAMINE
     Indication: PANIC ATTACK
     Dosage: 150 MG, QD
     Route: 065
  2. IMIPRAMINE [Suspect]
     Active Substance: IMIPRAMINE
     Dosage: 75 MG, QD
     Route: 065
  3. IMIPRAMINE [Suspect]
     Active Substance: IMIPRAMINE
     Dosage: 150 MG, QD
     Route: 065
  4. IMIPRAMINE [Suspect]
     Active Substance: IMIPRAMINE
     Dosage: 75 MG, QD
     Route: 065
  5. IMIPRAMINE [Suspect]
     Active Substance: IMIPRAMINE
     Dosage: 125 MG, QD
     Route: 065

REACTIONS (2)
  - Painful ejaculation [Recovered/Resolved]
  - Dry mouth [Unknown]
